FAERS Safety Report 15917747 (Version 1)
Quarter: 2019Q1

REPORT INFORMATION
  Report Type: Spontaneous
  Country: JP (occurrence: JP)
  Receive Date: 20190205
  Receipt Date: 20190205
  Transmission Date: 20190417
  Serious: Yes (Other)
  Sender: FDA-Public Use
  Company Number: JP-TEVA-2019-JP-000560J

PATIENT
  Age: 70 Year
  Sex: Female

DRUGS (1)
  1. AMOLIN CAPSULES 250 [Suspect]
     Active Substance: AMOXICILLIN
     Indication: PHARYNGITIS
     Dosage: 250 MILLIGRAM DAILY; IN THE DAYTIME
     Route: 048
     Dates: start: 20190129, end: 20190129

REACTIONS (1)
  - Drug hypersensitivity [Recovering/Resolving]

NARRATIVE: CASE EVENT DATE: 20190129
